FAERS Safety Report 5676009-7 (Version None)
Quarter: 2008Q1

REPORT INFORMATION
  Report Type: 
  Country: None (occurrence: None)
  Receive Date: 20080318
  Receipt Date: 20080304
  Transmission Date: 20080703
  Serious: Yes (Death)
  Sender: FDA-Public Use
  Company Number: KADN20080011

PATIENT
  Age: 41 Year
  Sex: Male
  Weight: 108.8633 kg

DRUGS (1)
  1. KADIAN 20 MG CAPSULES [Suspect]
     Indication: MUSCULOSKELETAL PAIN
     Dosage: 20 MG, BID, PER ORAL
     Route: 048
     Dates: start: 20080201, end: 20080301

REACTIONS (2)
  - BICUSPID AORTIC VALVE [None]
  - CARDIOMEGALY [None]
